FAERS Safety Report 10200768 (Version 1)
Quarter: 2014Q2

REPORT INFORMATION
  Report Type: Spontaneous
  Country: US (occurrence: US)
  Receive Date: 20140528
  Receipt Date: 20140528
  Transmission Date: 20141212
  Serious: No
  Sender: FDA-Public Use
  Company Number: US-SHIRE-US201402488

PATIENT
  Age: 50 Year
  Sex: Male
  Weight: 88.44 kg

DRUGS (3)
  1. VYVANSE [Suspect]
     Indication: PRODUCT USED FOR UNKNOWN INDICATION
     Dosage: 80 MG, ONE DOSE (TWO 40 MG CAPSULES)
     Route: 048
     Dates: start: 20140523, end: 20140523
  2. ANTIBIOTICS [Concomitant]
     Indication: ROSACEA
     Dosage: UNK, UNKNOWN
     Route: 065
  3. ANTIBIOTICS [Concomitant]
     Indication: RASH

REACTIONS (3)
  - Medication error [Recovered/Resolved]
  - Accidental overdose [Recovered/Resolved]
  - No adverse event [Recovered/Resolved]
